FAERS Safety Report 10073296 (Version 1)
Quarter: 2014Q2

REPORT INFORMATION
  Report Type: Spontaneous
  Country: GB (occurrence: GB)
  Receive Date: 20140411
  Receipt Date: 20140411
  Transmission Date: 20141212
  Serious: Yes (Life-Threatening)
  Sender: FDA-Public Use
  Company Number: GB-GLAXOSMITHKLINE-B0984013A

PATIENT
  Age: 62 Year
  Sex: Female
  Weight: 53.65 kg

DRUGS (3)
  1. VENTOLIN [Suspect]
     Route: 055
     Dates: start: 20140328
  2. PREDNISOLONE [Concomitant]
     Dates: start: 20140324
  3. SALBUTAMOL [Concomitant]
     Dates: start: 20140324

REACTIONS (5)
  - Circulatory collapse [Recovered/Resolved]
  - Shock [Unknown]
  - Retching [Unknown]
  - Tremor [Unknown]
  - Cardiac disorder [Unknown]
